FAERS Safety Report 8523574-8 (Version None)
Quarter: 2012Q3

REPORT INFORMATION
  Report Type: 
  Country: None (occurrence: None)
  Receive Date: 20120716
  Receipt Date: 20120716
  Transmission Date: 20120928
  Serious: Yes (Other)
  Sender: FDA-Public Use
  Company Number: None

PATIENT
  Age: 32 Year
  Sex: Male
  Weight: 86.1834 kg

DRUGS (1)
  1. PROPECIA [Suspect]
     Indication: ALOPECIA
     Dosage: 1 TABLET 1 PER DAY PO
     Route: 048
     Dates: start: 20080901, end: 20100106

REACTIONS (7)
  - ANXIETY [None]
  - NEUROPATHY PERIPHERAL [None]
  - PANIC ATTACK [None]
  - DISTURBANCE IN ATTENTION [None]
  - INSOMNIA [None]
  - VISUAL IMPAIRMENT [None]
  - IMPAIRED DRIVING ABILITY [None]
